FAERS Safety Report 9856243 (Version 1)
Quarter: 2013Q4

REPORT INFORMATION
  Report Type: Spontaneous
  Country: US (occurrence: None)
  Receive Date: 20131226
  Receipt Date: 20131226
  Transmission Date: 20140711
  Serious: Yes (Hospitalization, Other)
  Sender: FDA-Public Use
  Company Number: PHEH2013US015354

PATIENT
  Age: 45 Year
  Sex: Male
  Weight: 49.4 kg

DRUGS (11)
  1. GILENYA (FINGOLIMOD) CAPSULE, 0.5MG [Suspect]
     Indication: MULTIPLE SCLEROSIS
     Route: 048
     Dates: start: 20130416, end: 20130708
  2. VALPROIC ACID (VALPROIC ACID) [Concomitant]
  3. OMEPRAZOLE (OMEPRAZOLE) [Concomitant]
  4. MECLIZINE (MECLOZINE) [Concomitant]
  5. AMLODIPINE (AMLODIPINE) [Concomitant]
  6. CITALOPRAM (CITALOPRAM) [Concomitant]
  7. LISINOPRIL (LISINOPRIL) [Concomitant]
  8. SIMVASTATIN (SIMVASTATIN) [Concomitant]
  9. GABAPENTIN (GABAPENTIN) [Concomitant]
  10. ASCORBIC ACID (ASCORBIC ACID) [Concomitant]
  11. TEMAZEPAM (TEMAZEPAM) [Concomitant]

REACTIONS (2)
  - Pneumonia [None]
  - Urinary tract infection [None]
